FAERS Safety Report 8545520-3 (Version None)
Quarter: 2012Q3

REPORT INFORMATION
  Report Type: 
  Country: None (occurrence: None)
  Receive Date: 20120727
  Receipt Date: 20111025
  Transmission Date: 20120928
  Serious: No
  Sender: FDA-Public Use
  Company Number: US-ASTRAZENECA-2011SE64497

PATIENT
  Age: 32 Year
  Sex: Female
  Weight: 96.2 kg

DRUGS (3)
  1. SEROQUEL [Suspect]
     Dosage: CUTS 200MG TABLET TO MAKE UP FOR 25MG
     Route: 048
  2. SEROQUEL [Suspect]
     Indication: BIPOLAR DISORDER
     Route: 048
     Dates: start: 20060101
  3. LAMICTAL [Concomitant]

REACTIONS (4)
  - DRUG DOSE OMISSION [None]
  - WRONG TECHNIQUE IN DRUG USAGE PROCESS [None]
  - INSOMNIA [None]
  - IRRITABLE BOWEL SYNDROME [None]
